FAERS Safety Report 15366881 (Version 1)
Quarter: 2018Q3

REPORT INFORMATION
  Report Type: Spontaneous
  Country: US (occurrence: US)
  Receive Date: 20180902
  Receipt Date: 20180902
  Transmission Date: 20181010
  Serious: Yes (Disabling)
  Sender: FDA-Public Use
  Company Number: None

PATIENT
  Age: 34 Year
  Sex: Male
  Weight: 99 kg

DRUGS (4)
  1. FISH OIL [Concomitant]
     Active Substance: FISH OIL
  2. VITAMIN D [Concomitant]
     Active Substance: CHOLECALCIFEROL
  3. ROGAINE [Suspect]
     Active Substance: MINOXIDIL
     Indication: ANDROGENETIC ALOPECIA
     Route: 061
     Dates: start: 20170101, end: 20180601
  4. CLOMID [Concomitant]
     Active Substance: CLOMIPHENE CITRATE

REACTIONS (3)
  - Erectile dysfunction [None]
  - Hypogonadism male [None]
  - Testicular atrophy [None]

NARRATIVE: CASE EVENT DATE: 20180319
